FAERS Safety Report 5285697-9 (Version None)
Quarter: 2007Q1

REPORT INFORMATION
  Report Type: 
  Country: None (occurrence: None)
  Receive Date: 20070126
  Receipt Date: 20061030
  Transmission Date: 20070707
  Serious: No
  Sender: FDA-Public Use
  Company Number: 2006-BP-11770BP

PATIENT
  Age: 52 Year
  Sex: Male
  Weight: 73.48 kg

DRUGS (5)
  1. APTIVUS [Suspect]
     Indication: HIV INFECTION
     Dosage: SEE TEXT (SEE TEXT,TPV,R 250/100MG (2 CAPSULES BID)),PO
     Route: 048
     Dates: start: 20031016
  2. ASPIRIN [Concomitant]
  3. FUZEON (ENFUIRTIDE) [Concomitant]
  4. NORVIR [Concomitant]
  5. EMTRIVA [Concomitant]

REACTIONS (2)
  - EPISTAXIS [None]
  - GLOMERULAR FILTRATION RATE DECREASED [None]
